FAERS Safety Report 18858389 (Version 1)
Quarter: 2021Q1

REPORT INFORMATION
  Report Type: Spontaneous
  Country: US (occurrence: US)
  Receive Date: 20210205
  Receipt Date: 20210205
  Transmission Date: 20210420
  Serious: Yes (Death, Hospitalization)
  Sender: FDA-Public Use
  Company Number: None

PATIENT
  Age: 78 Year
  Sex: Male
  Weight: 98.6 kg

DRUGS (7)
  1. ASPIRIN 81 [Concomitant]
     Active Substance: ASPIRIN
  2. FAMOTIDINE. [Concomitant]
     Active Substance: FAMOTIDINE
  3. HEPARIN INFUSION [Concomitant]
  4. CHLORHEXIDINE GLUCONATE ORAL RINSE, 0.12% [Suspect]
     Active Substance: CHLORHEXIDINE GLUCONATE
     Indication: PNEUMONIA
     Route: 049
     Dates: end: 20201016
  5. NOREPINEPHRINE INFUSION [Concomitant]
     Active Substance: NOREPINEPHRINE
  6. ACETAMINOPHEN. [Concomitant]
     Active Substance: ACETAMINOPHEN
  7. DOCUSATE SOLUTION [Concomitant]
     Active Substance: DOCUSATE

REACTIONS (14)
  - Pyrexia [None]
  - Dyspnoea [None]
  - Hypotension [None]
  - General physical health deterioration [None]
  - Recalled product administered [None]
  - Product contamination microbial [None]
  - Staphylococcal infection [None]
  - Heart rate increased [None]
  - Mental status changes [None]
  - Sputum culture positive [None]
  - Shock [None]
  - Mean arterial pressure increased [None]
  - Respiratory rate increased [None]
  - Burkholderia test positive [None]

NARRATIVE: CASE EVENT DATE: 20201016
